FAERS Safety Report 23259009 (Version 1)
Quarter: 2023Q4

REPORT INFORMATION
  Report Type: Spontaneous
  Country: EG (occurrence: EG)
  Receive Date: 20231204
  Receipt Date: 20231204
  Transmission Date: 20240110
  Serious: Yes (Other)
  Sender: FDA-Public Use
  Company Number: EG-FreseniusKabi-FK202319621

PATIENT
  Age: 70 Year
  Sex: Female
  Weight: 55 kg

DRUGS (6)
  1. OXALIPLATIN [Suspect]
     Active Substance: OXALIPLATIN
     Indication: Colorectal cancer metastatic
     Route: 042
     Dates: start: 201909
  2. PANITUMUMAB [Concomitant]
     Active Substance: PANITUMUMAB
     Indication: Colorectal cancer metastatic
     Dosage: DOSE WAS REDUCED BY 25PERCENT DUE TO HER FRAGILITY
     Route: 042
  3. PANITUMUMAB [Concomitant]
     Active Substance: PANITUMUMAB
     Dosage: 400MG
     Route: 042
  4. CAPECITABINE [Concomitant]
     Active Substance: CAPECITABINE
     Indication: Colorectal cancer metastatic
     Dosage: DOSE WAS REDUCED BY 25PERCENT DUE TO HER FRAGILITY
  5. CAPECITABINE [Concomitant]
     Active Substance: CAPECITABINE
     Dosage: 2 X 500MG?FOA: TABLET
  6. BEVACIZUMAB [Concomitant]
     Active Substance: BEVACIZUMAB
     Indication: Colorectal cancer metastatic
     Dosage: 400MG
     Route: 042

REACTIONS (2)
  - Neurotoxicity [Unknown]
  - Fatigue [Unknown]
